FAERS Safety Report 26171634 (Version 1)
Quarter: 2025Q4

REPORT INFORMATION
  Report Type: Report from Study
  Country: EU (occurrence: EU)
  Receive Date: 20251217
  Receipt Date: 20251217
  Transmission Date: 20260118
  Serious: Yes (Hospitalization)
  Sender: ABBVIE
  Company Number: EU-ABBVIE-6565593

PATIENT
  Age: 75 Year
  Sex: Female
  Weight: 99 kg

DRUGS (1)
  1. MIRVETUXIMAB SORAVTANSINE [Suspect]
     Active Substance: MIRVETUXIMAB SORAVTANSINE
     Indication: Ovarian epithelial cancer
     Route: 042

REACTIONS (3)
  - Pneumonia [Unknown]
  - Pneumonia [Not Recovered/Not Resolved]
  - Interstitial lung disease [Unknown]
